FAERS Safety Report 8138108-X (Version None)
Quarter: 2012Q1

REPORT INFORMATION
  Report Type: 
  Country: None (occurrence: None)
  Receive Date: 20120215
  Receipt Date: 20120215
  Transmission Date: 20120608
  Serious: No
  Sender: FDA-Public Use
  Company Number: None

PATIENT
  Age: 52 Year
  Sex: Female
  Weight: 94.8 kg

DRUGS (2)
  1. SIMVASTATIN [Suspect]
     Indication: BLOOD CHOLESTEROL INCREASED
     Route: 048
     Dates: start: 20120127, end: 20120130
  2. IBUPROFEN [Concomitant]
     Route: 048

REACTIONS (4)
  - LYMPHATIC DISORDER [None]
  - MYALGIA [None]
  - MASS [None]
  - RENAL FAILURE [None]
